FAERS Safety Report 23768654 (Version 2)
Quarter: 2024Q2

REPORT INFORMATION
  Report Type: Spontaneous
  Country: NO (occurrence: NO)
  Receive Date: 20240422
  Receipt Date: 20240503
  Transmission Date: 20240717
  Serious: Yes (Hospitalization, Disabling, Other)
  Sender: FDA-Public Use
  Company Number: NO-NALPROPION PHARMACEUTICALS INC.-NO-2024CUR001760

PATIENT
  Age: 65 Year
  Sex: Female

DRUGS (2)
  1. BUPROPION HYDROCHLORIDE\NALTREXONE HYDROCHLORIDE [Suspect]
     Active Substance: BUPROPION HYDROCHLORIDE\NALTREXONE HYDROCHLORIDE
     Indication: Weight control
     Dosage: STRENGTH 8/90 MG, UNKNOWN DOSE AND FREQUENCY (TAKEN AS PRESCRIBED BY PRIMARY GP)
     Route: 048
     Dates: start: 202211, end: 202311
  2. ACETAMINOPHEN\CODEINE PHOSPHATE [Interacting]
     Active Substance: ACETAMINOPHEN\CODEINE PHOSPHATE
     Indication: Pain
     Dosage: UNK
     Route: 065
     Dates: start: 20231130

REACTIONS (10)
  - Inadequate analgesia [Unknown]
  - Pain [Unknown]
  - Joint dislocation [Unknown]
  - Peripheral paralysis [Unknown]
  - Consciousness fluctuating [Unknown]
  - Shoulder fracture [Unknown]
  - Musculoskeletal disorder [Unknown]
  - Drug interaction [Unknown]
  - Fall [Unknown]
  - Contraindicated product administered [Unknown]

NARRATIVE: CASE EVENT DATE: 20230101
